FAERS Safety Report 7238135-0 (Version None)
Quarter: 2011Q1

REPORT INFORMATION
  Report Type: 
  Country: None (occurrence: None)
  Receive Date: 20110119
  Receipt Date: 20110119
  Transmission Date: 20110831
  Serious: No
  Sender: FDA-Public Use
  Company Number: None

PATIENT
  Sex: Male
  Weight: 96.3 kg

DRUGS (14)
  1. CARDURA [Concomitant]
  2. DILAUDID [Concomitant]
  3. COMPAZINE [Concomitant]
  4. LOVENOX [Concomitant]
  5. ZAROXOLYN [Concomitant]
  6. GEMCITABINE HYDROCHLORIDE [Suspect]
     Dosage: 5850 MG
     Dates: end: 20101201
  7. TARCEVA [Suspect]
     Dosage: 2800 MG
     Dates: end: 20101221
  8. PANITUMUMAB [Suspect]
     Dosage: 720 MG
     Dates: end: 20101201
  9. MAG OX [Concomitant]
  10. RITALIN [Concomitant]
  11. EFFEXOR XR [Concomitant]
  12. COREG [Concomitant]
  13. PROBIOTICS [Concomitant]
  14. AMOXICILLIN [Concomitant]

REACTIONS (7)
  - SYNCOPE [None]
  - ACUTE PRERENAL FAILURE [None]
  - HYPERNATRAEMIA [None]
  - BLOOD URINE PRESENT [None]
  - ANAEMIA [None]
  - FALL [None]
  - DUODENAL ULCER HAEMORRHAGE [None]
